FAERS Safety Report 6645622-2 (Version None)
Quarter: 2010Q1

REPORT INFORMATION
  Report Type: 
  Country: None (occurrence: None)
  Receive Date: 20100323
  Receipt Date: 20100312
  Transmission Date: 20100710
  Serious: Yes (Hospitalization)
  Sender: FDA-Public Use
  Company Number: US-JNJFOC-20100201808

PATIENT
  Sex: Male
  Weight: 59.1 kg

DRUGS (6)
  1. REMICADE [Suspect]
     Indication: CROHN'S DISEASE
     Route: 042
  2. REMICADE [Suspect]
     Route: 042
  3. IMURAN [Concomitant]
     Indication: CROHN'S DISEASE
  4. PENTASA [Concomitant]
     Indication: CROHN'S DISEASE
  5. ASTELIN [Concomitant]
     Indication: RHINITIS ALLERGIC
     Route: 045
  6. ALBUTEROL [Concomitant]
     Indication: ASTHMA

REACTIONS (3)
  - HEPATIC ENZYME INCREASED [None]
  - THROMBOCYTOPENIA [None]
  - VARICELLA [None]
